FAERS Safety Report 5407651-6 (Version None)
Quarter: 2007Q3

REPORT INFORMATION
  Report Type: 
  Country: None (occurrence: None)
  Receive Date: 20070807
  Receipt Date: 20070726
  Transmission Date: 20080115
  Serious: Yes (Hospitalization)
  Sender: FDA-Public Use
  Company Number: CH-PFIZER INC-2007061495

PATIENT
  Age: 65 Year
  Sex: Female

DRUGS (8)
  1. XANAX [Suspect]
     Route: 048
  2. BUPRENORPHINE HCL [Suspect]
     Indication: PAIN
     Route: 060
  3. NEXIUM [Concomitant]
     Route: 048
  4. PRAVASTATIN [Concomitant]
     Route: 048
  5. TORSEMIDE [Concomitant]
     Route: 048
  6. EUTHYROX [Concomitant]
     Route: 048
  7. ASPIRIN [Concomitant]
     Route: 048
  8. DAFALGAN [Concomitant]
     Route: 048

REACTIONS (7)
  - C-REACTIVE PROTEIN INCREASED [None]
  - CONFUSIONAL STATE [None]
  - HYPERPYREXIA [None]
  - HYPOTENSION [None]
  - HYPOXIA [None]
  - PYREXIA [None]
  - TACHYCARDIA [None]
